FAERS Safety Report 23399757 (Version 1)
Quarter: 2024Q1

REPORT INFORMATION
  Report Type: Spontaneous
  Country: IT (occurrence: IT)
  Receive Date: 20240114
  Receipt Date: 20240114
  Transmission Date: 20240410
  Serious: Yes (Death, Other)
  Sender: FDA-Public Use
  Company Number: IT-PURACAP-IT-2024EPCLIT00012

PATIENT
  Age: 56 Year
  Sex: Male
  Weight: 73 kg

DRUGS (5)
  1. AMLODIPINE [Suspect]
     Active Substance: AMLODIPINE BESYLATE
     Indication: Product used for unknown indication
     Dosage: 14 TABLETS PER BOTTLE AT 10 MG EACH
     Route: 065
  2. CARVEDILOL [Suspect]
     Active Substance: CARVEDILOL
     Indication: Product used for unknown indication
     Dosage: 30 TABLETS PER BOTTLE AT 25 MG EACH
     Route: 065
  3. DOXAZOSIN [Suspect]
     Active Substance: DOXAZOSIN MESYLATE
     Indication: Product used for unknown indication
     Dosage: ONE BOTTLE OF DOX (30 TABLETS PER  BOTTLE AT 2 MG EACH
     Route: 065
  4. DOXAZOSIN [Suspect]
     Active Substance: DOXAZOSIN MESYLATE
     Dosage: SECOND BOTTLE OF DOX (20 TABLETS PER BOTTLE AT 4  MG EACH)
     Route: 065
  5. LACOSAMIDE [Concomitant]
     Active Substance: LACOSAMIDE
     Indication: Product used for unknown indication
     Route: 065

REACTIONS (9)
  - Brain oedema [Fatal]
  - Pulmonary oedema [Fatal]
  - Aortic arteriosclerosis [Fatal]
  - Unresponsive to stimuli [Fatal]
  - Myocardial fibrosis [Fatal]
  - Petechiae [Fatal]
  - Toxicity to various agents [Fatal]
  - Drug interaction [Unknown]
  - Intentional overdose [Unknown]
